FAERS Safety Report 7487737-5 (Version None)
Quarter: 2011Q2

REPORT INFORMATION
  Report Type: 
  Country: None (occurrence: None)
  Receive Date: 20110518
  Receipt Date: 20110512
  Transmission Date: 20111010
  Serious: Yes (Other)
  Sender: FDA-Public Use
  Company Number: PHHY2011AU40974

PATIENT
  Sex: Male

DRUGS (2)
  1. PHYSIOTENS [Concomitant]
  2. EXFORGE [Suspect]
     Dosage: 10/60 MG, UNK

REACTIONS (1)
  - HYPERTENSION [None]
